FAERS Safety Report 18794878 (Version 2)
Quarter: 2021Q2

REPORT INFORMATION
  Report Type: Spontaneous
  Country: US (occurrence: US)
  Receive Date: 20210127
  Receipt Date: 20210423
  Transmission Date: 20210717
  Serious: No
  Sender: FDA-Public Use
  Company Number: US-ALMIRALL, LLC-2020AQU000545

PATIENT

DRUGS (3)
  1. SEYSARA [Suspect]
     Active Substance: SARECYCLINE HYDROCHLORIDE
     Indication: ACNE
     Dosage: 150 MG, QD
     Route: 048
  2. SEYSARA [Suspect]
     Active Substance: SARECYCLINE HYDROCHLORIDE
     Dosage: 100 MG, QD
     Route: 048
  3. CETAPHIL GENTLE SKIN CLEANSER      /02508801/ [Concomitant]
     Indication: PRODUCT USED FOR UNKNOWN INDICATION

REACTIONS (2)
  - Rash macular [Not Recovered/Not Resolved]
  - Erythema [Not Recovered/Not Resolved]

NARRATIVE: CASE EVENT DATE: 2020
